FAERS Safety Report 4881056-9 (Version None)
Quarter: 2005Q4

REPORT INFORMATION
  Report Type: 
  Country: None (occurrence: None)
  Receive Date: 20051223
  Receipt Date: 20050927
  Transmission Date: 20060501
  Serious: No
  Sender: FDA-Public Use
  Company Number: 05P-163-0312094-00

PATIENT
  Age: 38 Year
  Sex: Female
  Weight: 42.1845 kg

DRUGS (4)
  1. HUMIRA [Suspect]
     Indication: RHEUMATOID ARTHRITIS
     Dosage: 40 MG, 1 IN 10 D, SUBCUTANEOUS
     Route: 058
     Dates: start: 20040101, end: 20050917
  2. PREDNISONE [Concomitant]
  3. MULTIVITAMIN [Concomitant]
  4. CALCIUM GLUCONATE [Concomitant]

REACTIONS (1)
  - CHEST DISCOMFORT [None]
